FAERS Safety Report 7338476-2 (Version None)
Quarter: 2011Q1

REPORT INFORMATION
  Report Type: 
  Country: None (occurrence: None)
  Receive Date: 20110308
  Receipt Date: 20110223
  Transmission Date: 20110831
  Serious: Yes (Hospitalization, Other)
  Sender: FDA-Public Use
  Company Number: FR-ELI_LILLY_AND_COMPANY-FR201103001285

PATIENT
  Sex: Female

DRUGS (3)
  1. CYMBALTA [Suspect]
     Indication: DEPRESSION
     Dosage: 60 MG, DAILY (1/D)
     Route: 048
     Dates: start: 20100518
  2. CYMBALTA [Suspect]
     Dosage: 30 MG, DAILY (1/D)
     Route: 048
     Dates: start: 20100702
  3. CYMBALTA [Suspect]
     Dosage: 30 MG, QOD
     Route: 048
     Dates: start: 20100826, end: 20100904

REACTIONS (16)
  - CARDIAC MURMUR [None]
  - MYALGIA [None]
  - PARAESTHESIA [None]
  - FLUSHING [None]
  - DRUG WITHDRAWAL SYNDROME [None]
  - VENTRICULAR EXTRASYSTOLES [None]
  - ABDOMINAL DISTENSION [None]
  - EXTRASYSTOLES [None]
  - GASTROINTESTINAL DISORDER [None]
  - ABDOMINAL TENDERNESS [None]
  - ORTHOSTATIC HYPOTENSION [None]
  - MALAISE [None]
  - PYREXIA [None]
  - BUNDLE BRANCH BLOCK RIGHT [None]
  - NAUSEA [None]
  - HEADACHE [None]
